FAERS Safety Report 9666061 (Version 1)
Quarter: 2013Q4

REPORT INFORMATION
  Report Type: Spontaneous
  Country: US (occurrence: US)
  Receive Date: 20131104
  Receipt Date: 20131104
  Transmission Date: 20140711
  Serious: No
  Sender: FDA-Public Use
  Company Number: US-PFIZER INC-2013311265

PATIENT
  Age: 32 Year
  Sex: Female
  Weight: 52.15 kg

DRUGS (1)
  1. ADVIL [Suspect]
     Indication: PAIN
     Dosage: TWO CAPSULES TOGETHER ONCE
     Route: 048
     Dates: start: 20131024, end: 20131024

REACTIONS (3)
  - Headache [Recovered/Resolved]
  - Diarrhoea [Recovered/Resolved]
  - Abdominal pain upper [Recovered/Resolved]
